FAERS Safety Report 4842698-X (Version None)
Quarter: 2005Q4

REPORT INFORMATION
  Report Type: 
  Country: None (occurrence: None)
  Receive Date: 20051129
  Receipt Date: 20051116
  Transmission Date: 20060501
  Serious: Yes (Hospitalization, Other)
  Sender: FDA-Public Use
  Company Number: 2005134867

PATIENT
  Age: 68 Year
  Sex: Female
  Weight: 72.5755 kg

DRUGS (4)
  1. CELEBREX [Suspect]
     Indication: OSTEOPOROSIS
     Dosage: 200 MG (200 MG 1 IN 1 D) ORAL
     Route: 048
     Dates: start: 19980101
  2. PAXIL [Concomitant]
  3. ALBUTEROL [Concomitant]
  4. ADVAIR DISKUS 100/50 [Concomitant]

REACTIONS (9)
  - CHRONIC OBSTRUCTIVE PULMONARY DISEASE [None]
  - CONDITION AGGRAVATED [None]
  - DEPRESSION [None]
  - ECONOMIC PROBLEM [None]
  - RESPIRATORY FAILURE [None]
  - SOMNOLENCE [None]
  - TREATMENT NONCOMPLIANCE [None]
  - VERTEBROPLASTY [None]
  - WEIGHT INCREASED [None]
